FAERS Safety Report 6600700-9 (Version None)
Quarter: 2010Q1

REPORT INFORMATION
  Report Type: 
  Country: None (occurrence: None)
  Receive Date: 20100223
  Receipt Date: 20100223
  Transmission Date: 20100710
  Serious: Yes (Hospitalization)
  Sender: FDA-Public Use
  Company Number: None

PATIENT
  Age: 49 Year
  Sex: Male
  Weight: 81 kg

DRUGS (9)
  1. NAFCILLIN [Suspect]
     Indication: BACTERAEMIA
     Dosage: 2 GM Q6H IV BOLUS
     Route: 040
     Dates: start: 20100108, end: 20100115
  2. ALLOPURINOL [Concomitant]
  3. FOLIC ACID [Concomitant]
  4. FUROSEMIDE [Concomitant]
  5. MULTI-VITAMIN [Concomitant]
  6. PANTOPRAZOLE [Concomitant]
  7. POTASSIUM CHLORIDE [Concomitant]
  8. PROPRANOLOL [Concomitant]
  9. THIAMINE [Concomitant]

REACTIONS (5)
  - BLOOD CREATININE [None]
  - CIRRHOSIS ALCOHOLIC [None]
  - EOSINOPHILS URINE PRESENT [None]
  - GASTRIC VARICES [None]
  - GASTRITIS [None]
